FAERS Safety Report 5816715-4 (Version None)
Quarter: 2008Q3

REPORT INFORMATION
  Report Type: 
  Country: None (occurrence: None)
  Receive Date: 20080721
  Receipt Date: 20080711
  Transmission Date: 20090109
  Serious: Yes (Other)
  Sender: FDA-Public Use
  Company Number: US-PFIZER INC-2008058173

PATIENT
  Age: 36 Year
  Sex: Female
  Weight: 59 kg

DRUGS (1)
  1. CHANTIX [Suspect]
     Indication: SMOKING CESSATION THERAPY
     Route: 048
     Dates: start: 20080615, end: 20080706

REACTIONS (9)
  - AGITATION [None]
  - DEPRESSION [None]
  - FEELING ABNORMAL [None]
  - INTENTIONAL SELF-INJURY [None]
  - IRRITABILITY [None]
  - MENTAL IMPAIRMENT [None]
  - NERVOUSNESS [None]
  - RESTLESSNESS [None]
  - SUICIDAL IDEATION [None]
